FAERS Safety Report 15859235 (Version 3)
Quarter: 2021Q2

REPORT INFORMATION
  Report Type: Report from Study
  Country: US (occurrence: US)
  Receive Date: 20190123
  Receipt Date: 20210608
  Transmission Date: 20210716
  Serious: Yes (Other)
  Sender: FDA-Public Use
  Company Number: US-JAZZ-JPI-P-020238

PATIENT
  Age: 63 Year
  Sex: Male
  Weight: 102.27 kg

DRUGS (2)
  1. XYREM [Suspect]
     Active Substance: SODIUM OXYBATE
     Indication: NARCOLEPSY
     Dosage: 2.25 GRAM, BID
     Route: 048
     Dates: start: 20120110
  2. XYREM [Suspect]
     Active Substance: SODIUM OXYBATE
     Indication: CATAPLEXY

REACTIONS (6)
  - Concussion [Unknown]
  - Back pain [Unknown]
  - Confusional state [Unknown]
  - Arthralgia [Unknown]
  - Lumbar vertebral fracture [Unknown]
  - Narcolepsy [Recovered/Resolved]

NARRATIVE: CASE EVENT DATE: 20120227
